FAERS Safety Report 25576504 (Version 1)
Quarter: 2025Q3

REPORT INFORMATION
  Report Type: Report from Study
  Country: US (occurrence: US)
  Receive Date: 20250718
  Receipt Date: 20250718
  Transmission Date: 20251021
  Serious: Yes (Death, Other)
  Sender: ACADIA PHARMACEUTICALS
  Company Number: US-ACADIA PHARMACEUTICALS INC.-ACA-2025-PIM-008333

PATIENT
  Age: 82 Year
  Sex: Female

DRUGS (22)
  1. NUPLAZID [Suspect]
     Active Substance: PIMAVANSERIN TARTRATE
     Indication: Parkinson^s disease
     Dosage: 34 MILLIGRAM, QD
     Route: 048
     Dates: start: 20240312, end: 20250714
  2. AMANTADINE [Concomitant]
     Active Substance: AMANTADINE
  3. AMMONIUM LACTATE [Concomitant]
     Active Substance: AMMONIUM LACTATE
  4. ATORVASTATIN [Concomitant]
     Active Substance: ATORVASTATIN
  5. DONEPEZIL [Concomitant]
     Active Substance: DONEPEZIL
  6. CARBIDOPA\LEVODOPA [Concomitant]
     Active Substance: CARBIDOPA\LEVODOPA
  7. FLUCONAZOLE [Concomitant]
     Active Substance: FLUCONAZOLE
  8. GEMTESA [Concomitant]
     Active Substance: VIBEGRON
  9. HYDROCHLOROTHIAZIDE [Concomitant]
     Active Substance: HYDROCHLOROTHIAZIDE
  10. LEVOFLOXACIN [Concomitant]
     Active Substance: LEVOFLOXACIN
  11. LISINOPRIL [Concomitant]
     Active Substance: LISINOPRIL
  12. MEMANTINE [Concomitant]
     Active Substance: MEMANTINE
  13. MUPIROCIN [Concomitant]
     Active Substance: MUPIROCIN
  14. NAPROXEN [Concomitant]
     Active Substance: NAPROXEN
  15. NIFEDIPINE [Concomitant]
     Active Substance: NIFEDIPINE
  16. OMEPRAZOLE [Concomitant]
     Active Substance: OMEPRAZOLE
  17. QUETIAPINE [Concomitant]
     Active Substance: QUETIAPINE
  18. RIVASTIGMINE [Concomitant]
     Active Substance: RIVASTIGMINE
  19. SERTRALINE [Concomitant]
     Active Substance: SERTRALINE HYDROCHLORIDE
  20. TERCONAZOLE [Concomitant]
     Active Substance: TERCONAZOLE
  21. TRAZODONE [Concomitant]
     Active Substance: TRAZODONE HYDROCHLORIDE
  22. VITAMIN D2 [Concomitant]
     Active Substance: ERGOCALCIFEROL

REACTIONS (1)
  - Disease progression [Fatal]

NARRATIVE: CASE EVENT DATE: 20250714
